FAERS Safety Report 6779093-2 (Version None)
Quarter: 2010Q2

REPORT INFORMATION
  Report Type: 
  Country: None (occurrence: None)
  Receive Date: 20100618
  Receipt Date: 20100610
  Transmission Date: 20101027
  Serious: Yes (Death, Hospitalization)
  Sender: FDA-Public Use
  Company Number: US-ELI_LILLY_AND_COMPANY-US201006003205

PATIENT
  Sex: Male
  Weight: 71.6 kg

DRUGS (19)
  1. CETUXIMAB [Suspect]
     Indication: NON-SMALL CELL LUNG CANCER
     Dosage: 995 MG, WEEKLY (1/W)
     Route: 042
     Dates: start: 20091202, end: 20100505
  2. CETUXIMAB [Suspect]
     Dates: end: 20100421
  3. GEMCITABINE HYDROCHLORIDE [Suspect]
     Indication: NON-SMALL CELL LUNG CANCER
     Dosage: 2070 MG, OTHER
     Route: 042
     Dates: start: 20091202, end: 20100331
  4. GEMCITABINE HYDROCHLORIDE [Suspect]
     Dates: end: 20100407
  5. CARBOPLATIN [Suspect]
     Indication: NON-SMALL CELL LUNG CANCER
     Dosage: 709 MG, OTHER
     Route: 042
     Dates: start: 20091202, end: 20100324
  6. CARBOPLATIN [Suspect]
     Dates: end: 20100407
  7. LANTUS [Concomitant]
     Dosage: 25 U, EACH EVENING
     Route: 058
  8. DETROL [Concomitant]
     Dosage: 4 MG, EACH EVENING
  9. ACTOS [Concomitant]
     Dosage: 30 MG, DAILY (1/D)
     Route: 048
  10. DARVOCET [Concomitant]
     Dosage: 1 D/F, EVERY 6 HRS
     Route: 048
  11. MEGACE [Concomitant]
     Dosage: 30 ML, DAILY (1/D)
     Route: 048
  12. POTASSIUM CHLORIDE [Concomitant]
     Dosage: 20 MEQ, DAILY (1/D)
     Route: 048
  13. CARDIZEM CD [Concomitant]
     Dosage: 180 MG, DAILY (1/D)
     Route: 048
  14. MAG-OX [Concomitant]
     Dosage: 400 MG, 2/D
     Route: 048
  15. PROZAC [Concomitant]
     Dosage: 20 MG, DAILY (1/D)
     Route: 048
  16. AMBIEN [Concomitant]
     Dosage: 10 MG, EACH EVENING
     Route: 048
  17. PROTONIX [Concomitant]
     Dosage: 40 MG, EACH MORNING
     Route: 048
  18. LOPRESSOR [Concomitant]
     Dosage: 50 MG, 2/D
     Route: 048
  19. CARAFATE [Concomitant]
     Dosage: 1 G, 4/D
     Route: 048

REACTIONS (2)
  - ANAEMIA [None]
  - HYPERCALCAEMIA [None]
